FAERS Safety Report 7335492-1 (Version None)
Quarter: 2011Q1

REPORT INFORMATION
  Report Type: 
  Country: None (occurrence: None)
  Receive Date: 20110302
  Receipt Date: 20110302
  Transmission Date: 20110831
  Serious: Yes (Hospitalization)
  Sender: FDA-Public Use
  Company Number: None

PATIENT
  Sex: Male
  Weight: 56.4 kg

DRUGS (5)
  1. NORVASC [Suspect]
  2. VINCRISTINE SULFATE [Suspect]
     Dosage: 10 MG
     Dates: end: 20100131
  3. METHOTREXATE [Concomitant]
     Dosage: 1727 MG
     Dates: end: 20100131
  4. BACTRIM [Concomitant]
  5. ONCASPAR [Suspect]
     Dosage: 8475 MG
     Dates: end: 20100111

REACTIONS (1)
  - HYPERBILIRUBINAEMIA [None]
